FAERS Safety Report 22946176 (Version 4)
Quarter: 2024Q2

REPORT INFORMATION
  Report Type: Report from Study
  Country: MX (occurrence: MX)
  Receive Date: 20230915
  Receipt Date: 20240513
  Transmission Date: 20240715
  Serious: Yes (Hospitalization, Other)
  Sender: FDA-Public Use
  Company Number: MX-TAKEDA-2023TUS070192

PATIENT
  Age: 7 Year
  Sex: Male

DRUGS (3)
  1. IDURSULFASE [Suspect]
     Active Substance: IDURSULFASE
     Indication: Mucopolysaccharidosis II
     Dosage: 18 MILLIGRAM
     Route: 065
     Dates: start: 20230621
  2. IDURSULFASE [Suspect]
     Active Substance: IDURSULFASE
     Dosage: 3 INTERNATIONAL UNIT, 1/WEEK
     Route: 042
     Dates: start: 20230628
  3. IDURSULFASE [Suspect]
     Active Substance: IDURSULFASE
     Dosage: UNK
     Route: 042

REACTIONS (8)
  - Skin discolouration [Recovered/Resolved]
  - Nail discolouration [Recovered/Resolved]
  - Dysphagia [Unknown]
  - Tremor [Recovered/Resolved]
  - Choking [Recovering/Resolving]
  - Diarrhoea [Recovering/Resolving]
  - Pyrexia [Recovering/Resolving]
  - Rhinorrhoea [Recovering/Resolving]

NARRATIVE: CASE EVENT DATE: 20230712
